FAERS Safety Report 7500440-8 (Version None)
Quarter: 2011Q2

REPORT INFORMATION
  Report Type: 
  Country: None (occurrence: None)
  Receive Date: 20110524
  Receipt Date: 20110321
  Transmission Date: 20111010
  Serious: No
  Sender: FDA-Public Use
  Company Number: US-BRISTOL-MYERS SQUIBB COMPANY-15620883

PATIENT
  Age: 65 Year
  Sex: Female

DRUGS (5)
  1. ONGLYZA [Suspect]
     Indication: TYPE 2 DIABETES MELLITUS
     Dosage: TAKEN 3 DOSES
     Dates: start: 20110318
  2. GLIMEPIRIDE [Concomitant]
     Dosage: QAM
  3. ASPIRIN [Concomitant]
  4. MECLIZINE [Concomitant]
     Indication: INNER EAR DISORDER
  5. XANAX [Concomitant]
     Indication: ANXIETY

REACTIONS (1)
  - DYSPEPSIA [None]
